FAERS Safety Report 7821505-7 (Version None)
Quarter: 2011Q4

REPORT INFORMATION
  Report Type: 
  Country: None (occurrence: None)
  Receive Date: 20111018
  Receipt Date: 20111006
  Transmission Date: 20120403
  Serious: Yes (Other)
  Sender: FDA-Public Use
  Company Number: PHHY2011BR80107

PATIENT
  Sex: Female

DRUGS (2)
  1. EXFORGE HCT [Suspect]
     Indication: HYPERTENSION
     Dosage: 160 MG VALSARTAN/12.5 MG HYDROCHLOROTHIAZIDE/5 MG ANLOPIDIPINE BESILATE, AT NIGHT
     Route: 048
     Dates: start: 20110907
  2. ATENOLOL [Suspect]
     Indication: HYPERTENSION
     Dosage: 1 DF, A DAY

REACTIONS (1)
  - BLOOD PRESSURE FLUCTUATION [None]
